FAERS Safety Report 19091557 (Version 2)
Quarter: 2021Q2

REPORT INFORMATION
  Report Type: Spontaneous
  Country: JP (occurrence: JP)
  Receive Date: 20210405
  Receipt Date: 20210428
  Transmission Date: 20210717
  Serious: Yes (Other)
  Sender: FDA-Public Use
  Company Number: JP-ABBVIE-21P-087-3844539-00

PATIENT
  Age: 45 Year
  Sex: Female

DRUGS (1)
  1. LEUPLIN [Suspect]
     Active Substance: LEUPROLIDE ACETATE
     Indication: BREAST CANCER FEMALE
     Dosage: 22.5 MILLIGRAM, Q6MONTHS
     Route: 050
     Dates: start: 20200620

REACTIONS (1)
  - Muscle rigidity [Recovering/Resolving]

NARRATIVE: CASE EVENT DATE: 20200620
